FAERS Safety Report 8173242-X (Version None)
Quarter: 2012Q1

REPORT INFORMATION
  Report Type: 
  Country: None (occurrence: None)
  Receive Date: 20120229
  Receipt Date: 20111212
  Transmission Date: 20120608
  Serious: No
  Sender: FDA-Public Use
  Company Number: US-GLAXOSMITHKLINE-A0957705A

PATIENT
  Age: 35 Year
  Sex: Female

DRUGS (2)
  1. SUMATRIPTAN SUCCINATE [Suspect]
     Indication: MIGRAINE
     Dosage: 1INJ AS REQUIRED
     Route: 058
     Dates: start: 20111211, end: 20111211
  2. NO CONCURRENT MEDICATION [Concomitant]

REACTIONS (2)
  - PRODUCT QUALITY ISSUE [None]
  - INJECTION SITE HAEMORRHAGE [None]
